FAERS Safety Report 4473455-4 (Version None)
Quarter: 2004Q3

REPORT INFORMATION
  Report Type: 
  Country: None (occurrence: None)
  Receive Date: 20040909
  Receipt Date: 20040527
  Transmission Date: 20050211
  Serious: Yes (Other)
  Sender: FDA-Public Use
  Company Number: A03200401719

PATIENT
  Sex: Male

DRUGS (2)
  1. ELOXATIN [Suspect]
     Indication: COLON CANCER STAGE IV
     Dosage: 130 MG/M2 OTHER - INTRAVENOUS NOS
     Route: 042
  2. CAPECITABINE [Concomitant]

REACTIONS (1)
  - DEAFNESS [None]
